FAERS Safety Report 5487456-0 (Version None)
Quarter: 2007Q4

REPORT INFORMATION
  Report Type: 
  Country: None (occurrence: None)
  Receive Date: 20071016
  Receipt Date: 20071004
  Transmission Date: 20080405
  Serious: Yes (Hospitalization, Other)
  Sender: FDA-Public Use
  Company Number: US-PFIZER INC-2007066923

PATIENT
  Sex: Female
  Weight: 60.8 kg

DRUGS (11)
  1. CELEBREX [Suspect]
     Indication: BACK PAIN
     Dates: start: 19990510, end: 20050105
  2. BEXTRA [Suspect]
     Indication: BACK PAIN
     Dates: start: 20020718, end: 20030404
  3. VIOXX [Suspect]
     Indication: BACK PAIN
     Dosage: TEXT:12.5MG AND 25MG
     Dates: start: 20000128, end: 20040930
  4. CYCLOBENZAPRINE HCL [Concomitant]
     Indication: PAIN
     Dates: start: 19990525, end: 20041005
  5. HYDROCODONE [Concomitant]
     Indication: PAIN
     Dates: start: 19990802, end: 20050522
  6. IBUPROFEN [Concomitant]
     Indication: PAIN
     Dates: start: 19990104, end: 20031102
  7. METHYLPREDNISOLONE [Concomitant]
     Indication: PAIN
     Dates: start: 19990819, end: 20040601
  8. ALL OTHER THERAPEUTIC PRODUCTS [Concomitant]
     Indication: PAIN
     Dates: start: 19990303, end: 20050604
  9. MEPROBAMATE [Concomitant]
     Indication: PAIN
     Dates: start: 19990303, end: 20050122
  10. ACCUPRIL [Concomitant]
     Indication: HYPERTENSION
     Dates: start: 19860101, end: 20070101
  11. GEMFIBROZIL [Concomitant]
     Indication: BLOOD CHOLESTEROL INCREASED
     Dates: start: 20010718, end: 20040702

REACTIONS (2)
  - INTESTINAL ISCHAEMIA [None]
  - THROMBOSIS [None]
